FAERS Safety Report 8072610-4 (Version None)
Quarter: 2012Q1

REPORT INFORMATION
  Report Type: 
  Country: None (occurrence: None)
  Receive Date: 20120126
  Receipt Date: 20120123
  Transmission Date: 20120608
  Serious: Yes (Hospitalization, Congenital Anomaly, Other)
  Sender: FDA-Public Use
  Company Number: US-PFIZER INC-2007095367

PATIENT
  Sex: Female
  Weight: 3.4 kg

DRUGS (13)
  1. ZOLOFT [Suspect]
     Dosage: 50 MG DAILY
     Route: 064
  2. KEFLEX [Concomitant]
     Dosage: UNK
     Route: 064
  3. MULTI-VITAMINS [Concomitant]
     Dosage: UNK
     Route: 064
  4. ZANTAC [Concomitant]
     Dosage: UNK
     Route: 064
  5. PRILOSEC [Concomitant]
     Dosage: UNK
     Route: 064
  6. ELIDEL [Concomitant]
     Indication: ECZEMA
     Dosage: UNK
     Route: 064
  7. PREVACID [Concomitant]
     Dosage: 15 MG, UNK
     Route: 064
  8. SUDAFED 12 HOUR [Concomitant]
     Dosage: UNK
     Route: 064
  9. ZOLOFT [Suspect]
     Indication: DEPRESSION
     Dosage: 100 MG, UNK
     Route: 064
  10. HYDROCORTISONE [Concomitant]
     Dosage: UNK
     Route: 064
  11. ACETAMINOPHEN [Concomitant]
     Dosage: UNK
     Route: 064
  12. ZITHROMAX [Concomitant]
     Indication: OTITIS MEDIA
     Dosage: UNK
     Route: 064
  13. AURALGAN [Concomitant]
     Indication: OTITIS MEDIA
     Dosage: UNK
     Route: 064

REACTIONS (2)
  - MATERNAL EXPOSURE TIMING UNSPECIFIED [None]
  - EBSTEIN'S ANOMALY [None]
